FAERS Safety Report 4335037-4 (Version None)
Quarter: 2004Q2

REPORT INFORMATION
  Report Type: 
  Country: None (occurrence: None)
  Receive Date: 20040408
  Receipt Date: 20040329
  Transmission Date: 20050107
  Serious: Yes (Other)
  Sender: FDA-Public Use
  Company Number: BR-GLAXOSMITHKLINE-A0506114A

PATIENT
  Age: 48 Year
  Sex: Female
  Weight: 71 kg

DRUGS (2)
  1. AMOXIL [Suspect]
     Indication: DRUG USE FOR UNKNOWN INDICATION
     Dosage: 500MG TWICE PER DAY
     Route: 048
     Dates: start: 20040328
  2. VOLTAREN [Suspect]
     Indication: DRUG USE FOR UNKNOWN INDICATION
     Dosage: 1TAB FOUR TIMES PER DAY
     Route: 048

REACTIONS (3)
  - CIRCULATORY COLLAPSE [None]
  - DRUG INTERACTION [None]
  - SYNCOPE [None]
